FAERS Safety Report 6599330-7 (Version None)
Quarter: 2010Q1

REPORT INFORMATION
  Report Type: 
  Country: None (occurrence: None)
  Receive Date: 20100216
  Receipt Date: 20100128
  Transmission Date: 20100710
  Serious: Yes (Hospitalization)
  Sender: FDA-Public Use
  Company Number: 2008AL009390

PATIENT
  Age: 70 Year
  Sex: Male

DRUGS (7)
  1. AMLODIPINE BESYLATE [Suspect]
     Indication: HYPERTENSION
     Dosage: 10 MG ; PO
     Route: 048
     Dates: start: 20070720, end: 20080610
  2. SELO-ZOK [Concomitant]
  3. ASPIRIN [Concomitant]
  4. LANSOPRAZOLE [Concomitant]
  5. COZAAR [Concomitant]
  6. ZANIDIP [Concomitant]
  7. SPIRIX [Concomitant]

REACTIONS (3)
  - COMPUTERISED TOMOGRAM ABNORMAL [None]
  - PANCREATIC CALCIFICATION [None]
  - PANCREATITIS ACUTE [None]
